FAERS Safety Report 12172770 (Version 3)
Quarter: 2016Q1

REPORT INFORMATION
  Report Type: Spontaneous
  Country: US (occurrence: US)
  Receive Date: 20160311
  Receipt Date: 20160331
  Transmission Date: 20160526
  Serious: Yes (Hospitalization, Other)
  Sender: FDA-Public Use
  Company Number: US-ACORDA-ACO_122266_2016

PATIENT
  Age: 68 Year
  Sex: Female
  Weight: 73.16 kg

DRUGS (4)
  1. AVONEX [Concomitant]
     Active Substance: INTERFERON BETA-1A
     Dosage: 30 MCG
  2. AMPYRA [Suspect]
     Active Substance: DALFAMPRIDINE
     Indication: GAIT DISTURBANCE
     Dosage: 10 MG Q 12 HRS
     Route: 048
     Dates: start: 2016, end: 2016
  3. AMPYRA [Suspect]
     Active Substance: DALFAMPRIDINE
     Indication: MULTIPLE SCLEROSIS
  4. TECFIDERA [Concomitant]
     Active Substance: DIMETHYL FUMARATE
     Indication: PRODUCT USED FOR UNKNOWN INDICATION
     Route: 065

REACTIONS (27)
  - Metabolic encephalopathy [Unknown]
  - Anaemia [Unknown]
  - Disorientation [Unknown]
  - Hypothermia [Unknown]
  - Memory impairment [Unknown]
  - Urinary tract infection [Unknown]
  - Epilepsy [Unknown]
  - Blood glucose decreased [Unknown]
  - Cold sweat [Unknown]
  - Aphasia [Unknown]
  - Hypotension [Unknown]
  - Malaise [Unknown]
  - Cerebrovascular accident [Unknown]
  - Muscular weakness [Unknown]
  - Hypertension [Unknown]
  - Multiple sclerosis relapse [Unknown]
  - Chronic kidney disease [Unknown]
  - Brain injury [Unknown]
  - Tremor [Unknown]
  - Fall [Unknown]
  - Confusional state [Unknown]
  - Hallucination [Unknown]
  - Hypoxia [Unknown]
  - Multiple sclerosis relapse [Recovering/Resolving]
  - Peroneal nerve palsy [Unknown]
  - Dementia [Unknown]
  - Altered state of consciousness [Unknown]

NARRATIVE: CASE EVENT DATE: 20160318
